FAERS Safety Report 6147015-3 (Version None)
Quarter: 2009Q2

REPORT INFORMATION
  Report Type: 
  Country: None (occurrence: None)
  Receive Date: 20090403
  Receipt Date: 20090323
  Transmission Date: 20091009
  Serious: Yes (Death, Hospitalization, Other)
  Sender: FDA-Public Use
  Company Number: ADE2009-0514

PATIENT
  Age: 77 Year
  Sex: Male

DRUGS (8)
  1. METFORMIN HCL [Suspect]
     Indication: DIABETES MELLITUS
     Dosage: 500MG - DAILY
  2. ERLOTINIB [Suspect]
     Indication: LUNG NEOPLASM MALIGNANT
     Dosage: 100MG - DAILY
     Dates: start: 20070802
  3. GLIBENCLAMIDE [Concomitant]
  4. REPAGLINIDE [Concomitant]
  5. DOXAZOSIN MESYLATE [Concomitant]
  6. OMEPRAZOLE [Concomitant]
  7. FUROSEMIDE [Concomitant]
  8. PREDNISONE [Concomitant]

REACTIONS (6)
  - ACUTE HEPATIC FAILURE [None]
  - HYPOPERFUSION [None]
  - LACTIC ACIDOSIS [None]
  - PALLOR [None]
  - RENAL FAILURE [None]
  - TACHYPNOEA [None]
